FAERS Safety Report 9395050 (Version 1)
Quarter: 2013Q3

REPORT INFORMATION
  Report Type: Spontaneous
  Country: SV (occurrence: SV)
  Receive Date: 20130711
  Receipt Date: 20130711
  Transmission Date: 20140515
  Serious: Yes (Death, Other)
  Sender: FDA-Public Use
  Company Number: SV-PFIZER INC-2013202450

PATIENT
  Age: 98 Year
  Sex: Female

DRUGS (1)
  1. CADUET [Suspect]
     Dosage: UNK
     Dates: start: 20120412

REACTIONS (1)
  - Death [Fatal]
